FAERS Safety Report 13382746 (Version 3)
Quarter: 2018Q1

REPORT INFORMATION
  Report Type: Report from Study
  Country: None (occurrence: US)
  Receive Date: 20170329
  Receipt Date: 20180207
  Transmission Date: 20180508
  Serious: Yes (Hospitalization)
  Sender: FDA-Public Use
  Company Number: US-ABBVIE-17K-163-1920316-00

PATIENT
  Age: 21 Year
  Sex: Male

DRUGS (4)
  1. PREDNISONE. [Concomitant]
     Active Substance: PREDNISONE
     Dosage: DOSAGE INCREASED
     Dates: start: 2017
  2. PREDNISONE. [Concomitant]
     Active Substance: PREDNISONE
     Indication: PRODUCT USED FOR UNKNOWN INDICATION
  3. LIALDA [Concomitant]
     Active Substance: MESALAMINE
     Indication: PRODUCT USED FOR UNKNOWN INDICATION
  4. HUMIRA [Suspect]
     Active Substance: ADALIMUMAB
     Indication: COLITIS ULCERATIVE
     Route: 058

REACTIONS (11)
  - Colitis ulcerative [Unknown]
  - Haematochezia [Unknown]
  - Incorrect dose administered [Unknown]
  - Diarrhoea haemorrhagic [Recovered/Resolved]
  - Nosocomial infection [Unknown]
  - Drug ineffective [Unknown]
  - Laryngospasm [Not Recovered/Not Resolved]
  - Gastroenteritis norovirus [Unknown]
  - Haemoglobin decreased [Recovering/Resolving]
  - Dermatitis acneiform [Not Recovered/Not Resolved]
  - Device issue [Unknown]

NARRATIVE: CASE EVENT DATE: 2017
